FAERS Safety Report 9192249 (Version 1)
Quarter: 2013Q1

REPORT INFORMATION
  Report Type: Spontaneous
  Country: CA (occurrence: None)
  Receive Date: 20130325
  Receipt Date: 20130325
  Transmission Date: 20140127
  Serious: Yes (Other)
  Sender: FDA-Public Use
  Company Number: FD201300818

PATIENT
  Sex: Female

DRUGS (1)
  1. HEPARIN SODIUM INJECTION [Suspect]
     Indication: CAROTID ARTERY STENOSIS
     Route: 042

REACTIONS (4)
  - Hemiparesis [None]
  - Device occlusion [None]
  - Heparin-induced thrombocytopenia [None]
  - Heparin-induced thrombocytopenia [None]
